FAERS Safety Report 6399450-6 (Version None)
Quarter: 2009Q4

REPORT INFORMATION
  Report Type: 
  Country: None (occurrence: None)
  Receive Date: 20091014
  Receipt Date: 20091001
  Transmission Date: 20100525
  Serious: Yes (Other)
  Sender: FDA-Public Use
  Company Number: PHHY2009CA41167

PATIENT
  Sex: Female

DRUGS (8)
  1. ALISKIREN ALI+ [Suspect]
     Indication: HYPERTENSION
     Dosage: 150 MG
     Route: 048
     Dates: start: 20090630
  2. WARFARIN SODIUM [Concomitant]
     Dosage: 2.5 MG, UNK
  3. ALTACE [Concomitant]
     Dosage: 10 MG, BID
  4. HYDROCHLOROTHIAZIDE [Concomitant]
     Dosage: 25 MG, UNK
  5. ASPIRIN [Concomitant]
     Dosage: 81 MG, UNK
  6. PREVACID [Concomitant]
     Dosage: 30 MG, UNK
  7. LIPITOR [Concomitant]
     Dosage: 20 MG, QHS
  8. MONOCOR [Concomitant]
     Dosage: 2.5 MG, BID

REACTIONS (1)
  - URINE ALBUMIN/CREATININE RATIO INCREASED [None]
